FAERS Safety Report 19682247 (Version 3)
Quarter: 2022Q1

REPORT INFORMATION
  Report Type: Spontaneous
  Country: US (occurrence: None)
  Receive Date: 20210810
  Receipt Date: 20220324
  Transmission Date: 20220423
  Serious: Yes (Death, Other)
  Sender: FDA-Public Use
  Company Number: 2021A664912

PATIENT
  Sex: Female
  Weight: 66.4 kg

DRUGS (23)
  1. NEXIUM [Suspect]
     Active Substance: ESOMEPRAZOLE MAGNESIUM
     Indication: Gastrooesophageal reflux disease
     Route: 048
  2. PRILOSEC [Suspect]
     Active Substance: OMEPRAZOLE MAGNESIUM
     Indication: Gastrooesophageal reflux disease
     Route: 048
  3. PRILOSEC [Suspect]
     Active Substance: OMEPRAZOLE MAGNESIUM
     Indication: Gastrooesophageal reflux disease
     Dosage: GENERIC
     Route: 065
  4. PREVACID [Suspect]
     Active Substance: LANSOPRAZOLE
     Indication: Gastrooesophageal reflux disease
     Route: 065
  5. PROTONIX [Suspect]
     Active Substance: PANTOPRAZOLE SODIUM
     Indication: Gastrooesophageal reflux disease
     Route: 065
  6. DICLOFENAC [Concomitant]
     Active Substance: DICLOFENAC
     Indication: Analgesic therapy
     Dates: start: 2018
  7. ALCAFTADINE/KETOROLAC [Concomitant]
     Indication: Back pain
     Dates: start: 2018, end: 2019
  8. TORADOL [Concomitant]
     Active Substance: KETOROLAC TROMETHAMINE
     Indication: Back pain
     Dates: start: 2018, end: 2019
  9. AMOXICILLIN [Concomitant]
     Active Substance: AMOXICILLIN
     Indication: Infection
     Dates: start: 2018
  10. KEFLEX [Concomitant]
     Active Substance: CEPHALEXIN
     Indication: Infection
     Dates: start: 2018
  11. CEFTRIAXONE [Concomitant]
     Active Substance: CEFTRIAXONE
     Indication: Bacterial infection
     Dates: start: 2018
  12. DOXYCYCLINE [Concomitant]
     Active Substance: DOXYCYCLINE
     Indication: Bacterial infection
     Dates: start: 2018
  13. LISINOPRIL [Concomitant]
     Active Substance: LISINOPRIL
     Indication: Hypertension
     Dates: start: 2018
  14. HYDROCHLOROTHIAZIDE [Concomitant]
     Active Substance: HYDROCHLOROTHIAZIDE
     Indication: Hypertension
     Dates: start: 2018
  15. SIMVASTATIN [Concomitant]
     Active Substance: SIMVASTATIN
     Indication: Blood cholesterol increased
     Dates: start: 2018
  16. ALPRAZOLAM [Concomitant]
     Active Substance: ALPRAZOLAM
     Indication: Blood cholesterol increased
     Dates: start: 2018
  17. CLARITIN-D NOS [Concomitant]
     Active Substance: LORATADINE\PSEUDOEPHEDRINE SULFATE
     Indication: Blood cholesterol increased
     Dates: start: 2018
  18. EZETIMIBE [Concomitant]
     Active Substance: EZETIMIBE
     Indication: Blood cholesterol increased
     Dates: start: 2018
  19. GABAPENTIN [Concomitant]
     Active Substance: GABAPENTIN
     Indication: Blood cholesterol increased
     Dates: start: 2018
  20. LEVEMIR [Concomitant]
     Active Substance: INSULIN DETEMIR
     Indication: Blood cholesterol increased
     Dates: start: 2018
  21. QUETIAPINE [Concomitant]
     Active Substance: QUETIAPINE
     Indication: Blood cholesterol increased
     Dates: start: 2018
  22. XANAX [Concomitant]
     Active Substance: ALPRAZOLAM
     Indication: Blood cholesterol increased
     Dates: start: 2018
  23. HYDROCODONE [Concomitant]
     Active Substance: HYDROCODONE
     Indication: Blood cholesterol increased
     Dates: start: 2018

REACTIONS (6)
  - Pulmonary embolism [Fatal]
  - Endocarditis [Fatal]
  - Osteomyelitis [Fatal]
  - Wound infection [Fatal]
  - Chronic kidney disease [Unknown]
  - Acute kidney injury [Unknown]
